FAERS Safety Report 15313195 (Version 1)
Quarter: 2018Q3

REPORT INFORMATION
  Report Type: Spontaneous
  Country: GB (occurrence: GB)
  Receive Date: 20180823
  Receipt Date: 20180823
  Transmission Date: 20181010
  Serious: Yes (Other)
  Sender: FDA-Public Use
  Company Number: GB-009507513-2011SP044575

PATIENT
  Age: 27 Year
  Sex: Female

DRUGS (4)
  1. IMPLANON [Suspect]
     Active Substance: ETONOGESTREL
     Indication: CONTRACEPTION
     Route: 058
     Dates: start: 20090527
  2. AMOXICILLIN. [Interacting]
     Active Substance: AMOXICILLIN
     Indication: PELVIC INFLAMMATORY DISEASE
     Route: 048
     Dates: start: 20110808, end: 20110815
  3. METRONIDAZOLE. [Interacting]
     Active Substance: METRONIDAZOLE
     Indication: PELVIC INFLAMMATORY DISEASE
     Dosage: 400 MG, UNK
     Route: 048
     Dates: start: 20110808, end: 20110815
  4. TEGRETOL [Interacting]
     Active Substance: CARBAMAZEPINE
     Indication: EPILEPSY
     Dosage: 600MG/400 MG
     Route: 048
     Dates: start: 2002

REACTIONS (3)
  - Pelvic inflammatory disease [Unknown]
  - Pregnancy with implant contraceptive [Unknown]
  - Drug interaction [Unknown]
